FAERS Safety Report 5025212-8 (Version None)
Quarter: 2006Q2

REPORT INFORMATION
  Report Type: 
  Country: None (occurrence: None)
  Receive Date: 20060609
  Receipt Date: 20060609
  Transmission Date: 20061013
  Serious: Yes (Life-Threatening, Hospitalization, Disabling)
  Sender: FDA-Public Use
  Company Number: None

PATIENT
  Age: 42 Year
  Sex: Male
  Weight: 63.05 kg

DRUGS (3)
  1. MS CONTIN [Suspect]
     Indication: PAIN
     Dosage: 240 MG ONCE PO
     Route: 048
     Dates: start: 20060523, end: 20060523
  2. MS CONTIN [Suspect]
     Indication: SELF-MEDICATION
     Dosage: 240 MG ONCE PO
     Route: 048
     Dates: start: 20060523, end: 20060523
  3. MS CONTIN [Suspect]
     Indication: BACK PAIN
     Dosage: 60 M TID PO
     Route: 048
     Dates: start: 20050610, end: 20060524

REACTIONS (4)
  - DEPRESSED LEVEL OF CONSCIOUSNESS [None]
  - INCORRECT DOSE ADMINISTERED [None]
  - OVERDOSE [None]
  - SOMNOLENCE [None]
